FAERS Safety Report 18438141 (Version 1)
Quarter: 2020Q4

REPORT INFORMATION
  Report Type: Spontaneous
  Country: JP (occurrence: JP)
  Receive Date: 20201028
  Receipt Date: 20201028
  Transmission Date: 20210114
  Serious: Yes (Hospitalization, Other)
  Sender: FDA-Public Use
  Company Number: JP-AMERICAN REGENT INC-2020002259

PATIENT
  Age: 59 Year
  Sex: Female

DRUGS (16)
  1. TRANSAMIN [Suspect]
     Active Substance: TRANEXAMIC ACID
     Indication: COUGH
     Route: 065
  2. DIMEMORFAN [Suspect]
     Active Substance: DIMEMORFAN
     Indication: MALAISE
  3. LORATADINE. [Suspect]
     Active Substance: LORATADINE
     Indication: MALAISE
  4. CARBOCISTEIN [Suspect]
     Active Substance: CARBOCYSTEINE
     Indication: COUGH
     Dosage: UNK
     Route: 065
  5. TRANSAMIN [Suspect]
     Active Substance: TRANEXAMIC ACID
     Indication: MALAISE
  6. LORATADINE. [Suspect]
     Active Substance: LORATADINE
     Indication: COUGH
     Dosage: UNK
     Route: 065
  7. CARBOCISTEIN [Suspect]
     Active Substance: CARBOCYSTEINE
     Indication: MALAISE
  8. CEFDITOREN PIVOXIL. [Suspect]
     Active Substance: CEFDITOREN PIVOXIL
     Indication: COUGH
     Dosage: UNK
     Route: 065
  9. AMBROXOL [Suspect]
     Active Substance: AMBROXOL
     Indication: COUGH
     Dosage: UNK
     Route: 065
  10. DIHYDROCODEINE [Suspect]
     Active Substance: DIHYDROCODEINE
     Indication: COUGH
     Dosage: UNK
     Route: 065
  11. AZITHROMYCIN ANHYDROUS. [Suspect]
     Active Substance: AZITHROMYCIN ANHYDROUS
     Indication: COUGH
     Dosage: UNK
     Route: 065
  12. DIHYDROCODEINE [Suspect]
     Active Substance: DIHYDROCODEINE
     Indication: MALAISE
  13. AZITHROMYCIN ANHYDROUS. [Suspect]
     Active Substance: AZITHROMYCIN ANHYDROUS
     Indication: MALAISE
  14. DIMEMORFAN [Suspect]
     Active Substance: DIMEMORFAN
     Indication: COUGH
     Route: 065
  15. AMBROXOL [Suspect]
     Active Substance: AMBROXOL
     Indication: MALAISE
  16. CEFDITOREN PIVOXIL. [Suspect]
     Active Substance: CEFDITOREN PIVOXIL
     Indication: MALAISE

REACTIONS (2)
  - Pruritus [Recovering/Resolving]
  - Paraneoplastic pemphigus [Recovering/Resolving]
